FAERS Safety Report 7116655-7 (Version None)
Quarter: 2010Q4

REPORT INFORMATION
  Report Type: 
  Country: None (occurrence: None)
  Receive Date: 20101122
  Receipt Date: 20101115
  Transmission Date: 20110411
  Serious: Yes (Hospitalization, Congenital Anomaly)
  Sender: FDA-Public Use
  Company Number: A0894330A

PATIENT
  Sex: Male
  Weight: 3.4 kg

DRUGS (2)
  1. PAXIL [Suspect]
     Indication: ANXIETY DISORDER
  2. PRENATAL VITAMINS [Concomitant]

REACTIONS (5)
  - CLEFT PALATE [None]
  - DRUG EXPOSURE DURING PREGNANCY [None]
  - MICROGNATHIA [None]
  - PATENT DUCTUS ARTERIOSUS [None]
  - PIERRE ROBIN SYNDROME [None]
